FAERS Safety Report 7136077-2 (Version None)
Quarter: 2010Q4

REPORT INFORMATION
  Report Type: 
  Country: None (occurrence: None)
  Receive Date: 20101204
  Receipt Date: 20101118
  Transmission Date: 20110411
  Serious: Yes (Other)
  Sender: FDA-Public Use
  Company Number: US-BAYER-201047785GPV

PATIENT

DRUGS (2)
  1. VENTAVIS [Suspect]
     Dosage: I-NEB CHAMBER GOLD AAD SYSTEM /
     Route: 055
     Dates: start: 20101015
  2. TRACLEER [Concomitant]
     Dosage: LAST SHIPMENT:10-NOV-2010
     Dates: start: 20050101

REACTIONS (6)
  - COUGH [None]
  - HEADACHE [None]
  - LOSS OF CONSCIOUSNESS [None]
  - NASAL CONGESTION [None]
  - OEDEMA PERIPHERAL [None]
  - WEIGHT INCREASED [None]
